FAERS Safety Report 4350896-7 (Version None)
Quarter: 2004Q2

REPORT INFORMATION
  Report Type: 
  Country: None (occurrence: None)
  Receive Date: 20040428
  Receipt Date: 20040419
  Transmission Date: 20050107
  Serious: Yes (Death)
  Sender: FDA-Public Use
  Company Number: US-JNJFOC-20040205559

PATIENT
  Age: 18 Year
  Sex: Male
  Weight: 79.8331 kg

DRUGS (4)
  1. RISPERDAL [Suspect]
     Dosage: 6 MG, 1 IN 1 DAY, ORAL
     Route: 048
     Dates: start: 20030916
  2. LITHIUM CARBONATE [Concomitant]
  3. DEPAKOTE [Concomitant]
  4. BENZTROPINE MESYLATE [Concomitant]

REACTIONS (4)
  - CONTUSION [None]
  - FOREIGN BODY ASPIRATION [None]
  - HEAD INJURY [None]
  - HEPATIC STEATOSIS [None]
